FAERS Safety Report 19058040 (Version 1)
Quarter: 2021Q1

REPORT INFORMATION
  Report Type: Spontaneous
  Country: US (occurrence: US)
  Receive Date: 20210324
  Receipt Date: 20210324
  Transmission Date: 20210420
  Serious: No
  Sender: FDA-Public Use
  Company Number: US-TEVA-2021-US-1891468

PATIENT

DRUGS (2)
  1. DIAZEPAM TEVA [Suspect]
     Active Substance: DIAZEPAM
     Indication: ANXIETY
     Dosage: 30 MG PER DAY
     Route: 065
     Dates: start: 2013
  2. DIAZEPAM TEVA [Suspect]
     Active Substance: DIAZEPAM
     Indication: POST-TRAUMATIC STRESS DISORDER
     Route: 065

REACTIONS (4)
  - Wrong technique in product usage process [Unknown]
  - Counterfeit product administered [Unknown]
  - Drug ineffective [Unknown]
  - Product taste abnormal [Unknown]
